FAERS Safety Report 6210797-6 (Version None)
Quarter: 2009Q2

REPORT INFORMATION
  Report Type: 
  Country: None (occurrence: None)
  Receive Date: 20090601
  Receipt Date: 20090518
  Transmission Date: 20091009
  Serious: Yes (Other)
  Sender: FDA-Public Use
  Company Number: KR-PFIZER INC-2009215852

PATIENT
  Age: 17 Year

DRUGS (1)
  1. SUNITINIB MALATE [Suspect]
     Indication: PHAEOCHROMOCYTOMA
     Dosage: 37.5 MG, UNK
     Dates: start: 20080101

REACTIONS (2)
  - PLEURAL EFFUSION [None]
  - TUMOUR NECROSIS [None]
